FAERS Safety Report 25358903 (Version 1)
Quarter: 2025Q2

REPORT INFORMATION
  Report Type: Spontaneous
  Country: US (occurrence: US)
  Receive Date: 20250526
  Receipt Date: 20250526
  Transmission Date: 20250717
  Serious: No
  Sender: TEVA
  Company Number: US-TEVA-VS-3332983

PATIENT
  Age: 46 Year
  Sex: Female

DRUGS (4)
  1. AUSTEDO XR [Suspect]
     Active Substance: DEUTETRABENAZINE
     Indication: Tardive dyskinesia
     Dosage: QAM PO X 3 WEEKS
     Route: 048
  2. AUSTEDO XR [Suspect]
     Active Substance: DEUTETRABENAZINE
     Indication: Tardive dyskinesia
     Route: 048
  3. TOPAMAX [Suspect]
     Active Substance: TOPIRAMATE
     Indication: Product used for unknown indication
     Dosage: TAKING TOPAMAX AT 9 PM
     Route: 065
  4. CAPLYTA [Concomitant]
     Active Substance: LUMATEPERONE
     Indication: Bipolar disorder
     Route: 048

REACTIONS (8)
  - Restlessness [Unknown]
  - Akathisia [Unknown]
  - Drug ineffective [Unknown]
  - Paraesthesia oral [Unknown]
  - Dry mouth [Unknown]
  - Disturbance in attention [Unknown]
  - Alopecia [Unknown]
  - Weight decreased [Unknown]
